FAERS Safety Report 7361202-8 (Version None)
Quarter: 2011Q1

REPORT INFORMATION
  Report Type: 
  Country: None (occurrence: None)
  Receive Date: 20110318
  Receipt Date: 20110304
  Transmission Date: 20110831
  Serious: Yes (Hospitalization)
  Sender: FDA-Public Use
  Company Number: PHHY2011NL18572

PATIENT
  Sex: Female

DRUGS (2)
  1. ZOMETA [Suspect]
     Indication: BREAST CANCER METASTATIC
     Dosage: 4 MG, PER 5 ML EVERY 28 DAYS
     Dates: start: 20110204
  2. ZOMETA [Suspect]
     Dosage: 4 MG, PER 5 ML EVERY 28 DAYS
     Dates: start: 20110304

REACTIONS (2)
  - BLOOD POTASSIUM DECREASED [None]
  - CONVULSION [None]
